FAERS Safety Report 25373342 (Version 1)
Quarter: 2025Q2

REPORT INFORMATION
  Report Type: Spontaneous
  Country: US (occurrence: None)
  Receive Date: 20250528
  Receipt Date: 20250528
  Transmission Date: 20250716
  Serious: Yes (Other)
  Sender: FDA-CTU
  Company Number: None

PATIENT
  Age: 59 Year
  Sex: Female

DRUGS (1)
  1. DALFAMPRIDINE [Suspect]
     Active Substance: DALFAMPRIDINE
     Indication: Multiple sclerosis
     Dosage: FREQUENCY : TWICE A DAY;?
     Dates: start: 20250131

REACTIONS (4)
  - Muscular weakness [None]
  - Therapy interrupted [None]
  - Urinary tract infection [None]
  - Gait disturbance [None]

NARRATIVE: CASE EVENT DATE: 20250519
